FAERS Safety Report 25297427 (Version 1)
Quarter: 2025Q2

REPORT INFORMATION
  Report Type: Report from Study
  Country: AR (occurrence: AR)
  Receive Date: 20250511
  Receipt Date: 20250511
  Transmission Date: 20250717
  Serious: Yes (Other)
  Sender: ABBVIE
  Company Number: AR-ABBVIE-6273810

PATIENT
  Age: 14 Year
  Sex: Male

DRUGS (1)
  1. HUMIRA [Suspect]
     Active Substance: ADALIMUMAB
     Indication: Hidradenitis
     Dosage: STRENGTH: 80/0.8
     Route: 058
     Dates: start: 20231017

REACTIONS (5)
  - Testis cancer [Not Recovered/Not Resolved]
  - Hidradenitis [Recovering/Resolving]
  - Genital rash [Not Recovered/Not Resolved]
  - Purulent discharge [Not Recovered/Not Resolved]
  - Testicular haemorrhage [Not Recovered/Not Resolved]

NARRATIVE: CASE EVENT DATE: 20241201
